FAERS Safety Report 24867298 (Version 1)
Quarter: 2025Q1

REPORT INFORMATION
  Report Type: Spontaneous
  Country: CN (occurrence: CN)
  Receive Date: 20250121
  Receipt Date: 20250121
  Transmission Date: 20250408
  Serious: Yes (Life-Threatening, Hospitalization, Other)
  Sender: NOVARTIS
  Company Number: CN-002147023-NVSC2025CN008519

PATIENT
  Age: 12 Year
  Sex: Male
  Weight: 61.16 kg

DRUGS (8)
  1. TRAMETINIB [Suspect]
     Active Substance: TRAMETINIB
     Indication: Germ cell neoplasm
     Dosage: 2 MG, QD
     Route: 048
     Dates: start: 20241009, end: 20241107
  2. RIFAMPIN [Suspect]
     Active Substance: RIFAMPIN
     Indication: Tuberculosis
     Dosage: 0.60 G, QD
     Route: 048
     Dates: start: 20241107, end: 20241111
  3. GEMCITABINE [Suspect]
     Active Substance: GEMCITABINE
     Indication: Germ cell neoplasm
     Dosage: 1.2 G, QD (D1)
     Route: 041
     Dates: start: 20241007, end: 20241007
  4. GEMCITABINE [Suspect]
     Active Substance: GEMCITABINE
     Indication: Metastases to central nervous system
  5. ISONIAZID [Suspect]
     Active Substance: ISONIAZID
     Indication: Tuberculosis
     Dosage: 300 MG, QD
     Route: 048
     Dates: start: 20241108, end: 20241111
  6. PACLITAXEL [Suspect]
     Active Substance: PACLITAXEL
     Indication: Germ cell neoplasm
     Dosage: 100 MG, QD (D1)
     Route: 041
     Dates: start: 20241107, end: 20241107
  7. PACLITAXEL [Suspect]
     Active Substance: PACLITAXEL
     Indication: Metastases to central nervous system
  8. OXALIPLATIN [Suspect]
     Active Substance: OXALIPLATIN
     Indication: Chemotherapy
     Route: 065

REACTIONS (21)
  - Liver injury [Recovering/Resolving]
  - Blood magnesium increased [Unknown]
  - Blood calcium increased [Unknown]
  - Shock [Unknown]
  - Tachypnoea [Unknown]
  - Tachycardia [Unknown]
  - Hepatic failure [Recovering/Resolving]
  - Haemoglobin increased [Recovering/Resolving]
  - Tuberculin test positive [Unknown]
  - Mycobacterium tuberculosis complex test positive [Unknown]
  - Hyperammonaemia [Recovering/Resolving]
  - Fibrin degradation products increased [Unknown]
  - Procalcitonin increased [Unknown]
  - Brain natriuretic peptide increased [Unknown]
  - Blood phosphorus increased [Unknown]
  - Blood alkaline phosphatase increased [Recovering/Resolving]
  - Blood lactate dehydrogenase increased [Recovering/Resolving]
  - C-reactive protein increased [Recovering/Resolving]
  - Blood uric acid decreased [Unknown]
  - Anti factor Xa assay [Unknown]
  - Antithrombin III increased [Unknown]

NARRATIVE: CASE EVENT DATE: 20241111
